FAERS Safety Report 5093157-3 (Version None)
Quarter: 2006Q3

REPORT INFORMATION
  Report Type: 
  Country: None (occurrence: None)
  Receive Date: 20060830
  Receipt Date: 20060818
  Transmission Date: 20061208
  Serious: Yes (Hospitalization)
  Sender: FDA-Public Use
  Company Number: FR-ROCHE-460298

PATIENT
  Age: 28 Year
  Sex: Male

DRUGS (7)
  1. RIVOTRIL [Suspect]
     Indication: DRUG USE FOR UNKNOWN INDICATION
     Dosage: DOSE REPORTED AS 5 DOSES DAILY
     Route: 048
     Dates: start: 20060307
  2. VANCOMYCIN [Suspect]
     Indication: MENINGITIS
     Route: 042
     Dates: start: 20060307, end: 20060526
  3. LOVENOX [Suspect]
     Indication: DRUG USE FOR UNKNOWN INDICATION
     Route: 058
     Dates: start: 20060307
  4. TIENAM [Suspect]
     Indication: MENINGITIS
     Route: 042
     Dates: start: 20060307, end: 20060403
  5. TIENAM [Suspect]
     Dosage: NO DETAILS PROVIDED
     Route: 042
     Dates: start: 20060425, end: 20060526
  6. LIORESAL [Suspect]
     Indication: DRUG USE FOR UNKNOWN INDICATION
     Dosage: DOSE REPORTED AS 1 DOSE THREE TIMES DAILY
     Route: 048
     Dates: start: 20060307
  7. FLAGYL [Suspect]
     Indication: MENINGITIS
     Route: 048
     Dates: start: 20060307, end: 20060526

REACTIONS (2)
  - INTERVERTEBRAL DISCITIS [None]
  - NEUTROPENIA [None]
